FAERS Safety Report 15536768 (Version 4)
Quarter: 2019Q1

REPORT INFORMATION
  Report Type: Spontaneous
  Country: US (occurrence: US)
  Receive Date: 20181022
  Receipt Date: 20190213
  Transmission Date: 20190417
  Serious: No
  Sender: FDA-Public Use
  Company Number: US-ASTRAZENECA-2018SF31056

PATIENT
  Age: 83 Year
  Sex: Female
  Weight: 58.5 kg

DRUGS (3)
  1. PULMICORT FLEXHALER [Suspect]
     Active Substance: BUDESONIDE
     Indication: DYSPNOEA
     Route: 055
     Dates: start: 20180925, end: 20181003
  2. PULMICORT FLEXHALER [Suspect]
     Active Substance: BUDESONIDE
     Indication: BRONCHITIS CHRONIC
     Route: 055
     Dates: start: 20180925, end: 20181003
  3. TYLENOL [Concomitant]
     Active Substance: ACETAMINOPHEN
     Indication: PRURITUS
     Dosage: ONCE A WHILE
     Route: 048

REACTIONS (9)
  - Intentional device misuse [Unknown]
  - Rheumatoid arthritis [Unknown]
  - Product dose omission [Unknown]
  - Device malfunction [Unknown]
  - Visual impairment [Unknown]
  - Circumstance or information capable of leading to medication error [Recovered/Resolved]
  - Dyspnoea [Unknown]
  - Off label use [Unknown]
  - Product use issue [Unknown]

NARRATIVE: CASE EVENT DATE: 20180927
